FAERS Safety Report 22661034 (Version 1)
Quarter: 2023Q2

REPORT INFORMATION
  Report Type: Spontaneous
  Country: KR (occurrence: KR)
  Receive Date: 20230630
  Receipt Date: 20230630
  Transmission Date: 20230721
  Serious: Yes (Other)
  Sender: FDA-Public Use
  Company Number: KR-JAZZ PHARMACEUTICALS-2023-KR-005885

PATIENT
  Age: 2 Year
  Sex: Male
  Weight: 15 kg

DRUGS (5)
  1. CANNABIDIOL [Suspect]
     Active Substance: CANNABIDIOL
     Indication: Lennox-Gastaut syndrome
     Dosage: 0.3CC -} 0.7CC -} 1CC BID
     Route: 048
     Dates: start: 202204
  2. CANNABIDIOL [Suspect]
     Active Substance: CANNABIDIOL
     Dosage: 0.3 MILLILITER, BID
     Route: 048
     Dates: start: 20220726
  3. CANNABIDIOL [Suspect]
     Active Substance: CANNABIDIOL
     Dosage: 1 MILLILITER, BID
     Route: 048
     Dates: start: 20221125
  4. CANNABIDIOL [Suspect]
     Active Substance: CANNABIDIOL
     Dosage: 0.6 MILLILITER, BID
     Route: 048
     Dates: start: 20230308
  5. CANNABIDIOL [Suspect]
     Active Substance: CANNABIDIOL
     Dosage: 0.8 MILLILITER, BID
     Route: 048
     Dates: start: 20230308

REACTIONS (3)
  - Decreased appetite [Not Recovered/Not Resolved]
  - Weight decreased [Not Recovered/Not Resolved]
  - Agitation [Recovering/Resolving]

NARRATIVE: CASE EVENT DATE: 20220701
